APPROVED DRUG PRODUCT: DICLOFENAC POTASSIUM
Active Ingredient: DICLOFENAC POTASSIUM
Strength: 50MG
Dosage Form/Route: TABLET;ORAL
Application: A215787 | Product #001 | TE Code: AB
Applicant: SENORES PHARMACEUTICALS INC
Approved: Mar 15, 2023 | RLD: No | RS: No | Type: RX